FAERS Safety Report 8468778-8 (Version None)
Quarter: 2012Q2

REPORT INFORMATION
  Report Type: 
  Country: None (occurrence: None)
  Receive Date: 20120619
  Receipt Date: 20120607
  Transmission Date: 20120825
  Serious: Yes (Other)
  Sender: FDA-Public Use
  Company Number: 2012AL000054

PATIENT
  Age: 51 Year
  Sex: Male

DRUGS (2)
  1. FOLOTYN [Suspect]
     Indication: PROSTATE CANCER
     Dosage: 148 MG/M**2;QOW;IV
     Route: 042
     Dates: start: 20120206, end: 20120521
  2. FLUOROURACIL [Suspect]
     Dosage: 3000 MG/M**2;QOW
     Dates: start: 20120207, end: 20120522

REACTIONS (2)
  - DEEP VEIN THROMBOSIS [None]
  - PULMONARY EMBOLISM [None]
